FAERS Safety Report 13587647 (Version 1)
Quarter: 2017Q2

REPORT INFORMATION
  Report Type: Spontaneous
  Country: FR (occurrence: FR)
  Receive Date: 20170526
  Receipt Date: 20170526
  Transmission Date: 20170830
  Serious: Yes (Other)
  Sender: FDA-Public Use
  Company Number: FR-TAKEDA-2017TUS011788

PATIENT
  Age: 65 Year
  Sex: Male

DRUGS (1)
  1. ADENURIC [Suspect]
     Active Substance: FEBUXOSTAT
     Indication: HYPERURICAEMIA
     Dosage: 80 MG, QD
     Route: 048
     Dates: start: 20131126

REACTIONS (2)
  - Rhabdomyolysis [Not Recovered/Not Resolved]
  - Extremity contracture [Not Recovered/Not Resolved]

NARRATIVE: CASE EVENT DATE: 2013
